FAERS Safety Report 9834476 (Version 2)
Quarter: 2014Q1

REPORT INFORMATION
  Report Type: Report from Study
  Country: AU (occurrence: AU)
  Receive Date: 20140122
  Receipt Date: 20140122
  Transmission Date: 20141002
  Serious: Yes (Other)
  Sender: FDA-Public Use
  Company Number: PHHY2013AU150105

PATIENT
  Age: 71 Year
  Sex: Male

DRUGS (1)
  1. SANDOSTATIN LAR [Suspect]
     Indication: ACROMEGALY
     Dosage: 20 MG
     Route: 030

REACTIONS (10)
  - Intraocular pressure increased [Unknown]
  - Visual field defect [Unknown]
  - Blindness [Unknown]
  - Capillary fragility [Not Recovered/Not Resolved]
  - Ocular hyperaemia [Not Recovered/Not Resolved]
  - Vision blurred [Not Recovered/Not Resolved]
  - Inflammation [Not Recovered/Not Resolved]
  - Open angle glaucoma [Unknown]
  - Retinal vein occlusion [Unknown]
  - Retinal ischaemia [Unknown]
